FAERS Safety Report 6431180-4 (Version None)
Quarter: 2009Q4

REPORT INFORMATION
  Report Type: 
  Country: None (occurrence: None)
  Receive Date: 20091105
  Receipt Date: 20091105
  Transmission Date: 20100525
  Serious: Yes (Disabling)
  Sender: FDA-Public Use
  Company Number: None

PATIENT
  Age: 28 Year
  Sex: Female
  Weight: 79.3795 kg

DRUGS (1)
  1. STADOL [Suspect]
     Indication: LABOUR PAIN
     Dosage: ONCE, IV; ONE TIME
     Route: 042
     Dates: start: 20081119, end: 20081119

REACTIONS (7)
  - CAESAREAN SECTION [None]
  - DRUG EXPOSURE DURING PREGNANCY [None]
  - EYE ROLLING [None]
  - INCOHERENT [None]
  - MYDRIASIS [None]
  - PALLOR [None]
  - TREMOR [None]
